FAERS Safety Report 8362885-6 (Version None)
Quarter: 2012Q2

REPORT INFORMATION
  Report Type: 
  Country: None (occurrence: None)
  Receive Date: 20120514
  Receipt Date: 20120427
  Transmission Date: 20120825
  Serious: Yes (Other)
  Sender: FDA-Public Use
  Company Number: 1225112

PATIENT
  Age: 43 Year
  Sex: Male

DRUGS (10)
  1. SENOKOT [Concomitant]
  2. ARTHROTEC [Concomitant]
  3. CORTISONE ACETATE [Concomitant]
  4. PANTOPRAZOLE SODIUM [Concomitant]
  5. ORENCIA [Suspect]
     Indication: RHEUMATOID ARTHRITIS
     Dosage: 750 MILLIGRAM, 1/4 WEEK
     Dates: start: 20081223, end: 20120409
  6. FOLIC ACID [Concomitant]
  7. METHOTREXATE [Suspect]
     Indication: PRODUCT USED FOR UNKNOWN INDICATION
  8. DILAUDID [Concomitant]
  9. COLACE [Concomitant]
  10. HYDROMORPHONE HCL [Concomitant]

REACTIONS (3)
  - TOOTH ABSCESS [None]
  - TOOTH INFECTION [None]
  - SINUS DISORDER [None]
